FAERS Safety Report 23545628 (Version 1)
Quarter: 2024Q1

REPORT INFORMATION
  Report Type: Report from Study
  Country: BE (occurrence: BE)
  Receive Date: 20240220
  Receipt Date: 20240220
  Transmission Date: 20240410
  Serious: Yes (Other)
  Sender: FDA-Public Use
  Company Number: BE-JNJFOC-20230817651

PATIENT

DRUGS (2)
  1. REMICADE [Suspect]
     Active Substance: INFLIXIMAB
     Indication: Colitis ulcerative
     Route: 041
  2. REMICADE [Suspect]
     Active Substance: INFLIXIMAB
     Indication: Crohn^s disease
     Route: 041

REACTIONS (46)
  - Pyelonephritis [Unknown]
  - Thrombosis [Unknown]
  - Anorexia nervosa [Unknown]
  - Pneumothorax [Unknown]
  - Ophthalmic herpes zoster [Unknown]
  - Gastroenteritis adenovirus [Unknown]
  - Gastroenteritis clostridial [Unknown]
  - Gastroenteritis salmonella [Unknown]
  - Osteomyelitis [Unknown]
  - Gastroenteritis Escherichia coli [Unknown]
  - Pertussis [Unknown]
  - Influenza [Unknown]
  - Respiratory tract infection viral [Unknown]
  - Pharyngitis streptococcal [Unknown]
  - Oral herpes [Unknown]
  - Pyrexia [Unknown]
  - Subcutaneous abscess [Unknown]
  - Eczema infected [Unknown]
  - Hidradenitis [Unknown]
  - Eczema [Unknown]
  - Psoriasis [Unknown]
  - Folliculitis [Unknown]
  - Otitis media [Unknown]
  - COVID-19 [Unknown]
  - Mycoplasma infection [Unknown]
  - Pharyngitis [Unknown]
  - Tonsillitis [Unknown]
  - Streptococcal infection [Unknown]
  - Laryngitis [Unknown]
  - Sinusitis [Unknown]
  - Conjunctivitis [Unknown]
  - Lymphadenitis [Unknown]
  - Gastroenteritis bacterial [Unknown]
  - Epstein-Barr virus infection [Unknown]
  - Hand-foot-and-mouth disease [Unknown]
  - Varicella zoster virus infection [Unknown]
  - Herpes zoster [Unknown]
  - Urinary tract infection [Unknown]
  - Cystitis [Unknown]
  - Arthralgia [Unknown]
  - Cellulitis [Unknown]
  - Impetigo [Unknown]
  - Bartholin^s cyst [Unknown]
  - Device related infection [Unknown]
  - Infusion related reaction [Unknown]
  - Off label use [Unknown]
